FAERS Safety Report 5610664-2 (Version None)
Quarter: 2008Q1

REPORT INFORMATION
  Report Type: 
  Country: None (occurrence: None)
  Receive Date: 20080128
  Receipt Date: 20080124
  Transmission Date: 20080703
  Serious: Yes (Hospitalization, Disabling)
  Sender: FDA-Public Use
  Company Number: 022829

PATIENT
  Age: 49 Year
  Sex: Female
  Weight: 68 kg

DRUGS (11)
  1. ADDERALL 10 [Suspect]
     Dosage: 15 MG, TID
     Dates: start: 20060101, end: 20061101
  2. ADDERALL XR(DEXAMFETAMINE SULFATE, DEXAMFETAMINE SACCHARATE, AMFETAMIN [Suspect]
     Indication: DISTURBANCE IN ATTENTION
     Dosage: 5 MG, QD, ORAL; 10 MG, QD, ORAL; 20 MG, QD, ORAL
     Route: 048
     Dates: start: 20051001, end: 20060101
  3. ADDERALL XR(DEXAMFETAMINE SULFATE, DEXAMFETAMINE SACCHARATE, AMFETAMIN [Suspect]
     Indication: DISTURBANCE IN ATTENTION
     Dosage: 5 MG, QD, ORAL; 10 MG, QD, ORAL; 20 MG, QD, ORAL
     Route: 048
     Dates: start: 20060101, end: 20060401
  4. ADDERALL XR(DEXAMFETAMINE SULFATE, DEXAMFETAMINE SACCHARATE, AMFETAMIN [Suspect]
     Indication: DISTURBANCE IN ATTENTION
     Dosage: 5 MG, QD, ORAL; 10 MG, QD, ORAL; 20 MG, QD, ORAL
     Route: 048
     Dates: start: 20060401, end: 20061031
  5. OMEGA 3 FISH OIL (FISH OIL) [Concomitant]
  6. CENTRUM SILVER (ASCORBIC ACID, MINERALS NOS, VITAMINS NOS, VITAMIN B N [Concomitant]
  7. PAXIL [Concomitant]
  8. GARLIC (GARLIC) [Concomitant]
  9. ASCORBIC ACID [Concomitant]
  10. VITAMIN E [Concomitant]
  11. COENZYME Q10 [Concomitant]

REACTIONS (3)
  - CARDIOMYOPATHY [None]
  - DRUG EFFECT DECREASED [None]
  - DYSPNOEA [None]
